FAERS Safety Report 13553656 (Version 4)
Quarter: 2017Q4

REPORT INFORMATION
  Report Type: Report from Study
  Country: US (occurrence: US)
  Receive Date: 20170517
  Receipt Date: 20171214
  Transmission Date: 20180320
  Serious: Yes (Hospitalization, Other)
  Sender: FDA-Public Use
  Company Number: US-PFIZER INC-2017215180

PATIENT
  Age: 72 Year
  Sex: Male
  Weight: 103 kg

DRUGS (10)
  1. ACETYLSALICYLIC ACID [Interacting]
     Active Substance: ASPIRIN
     Dosage: ADDED ON HD4
     Dates: start: 20150831
  2. VALPROIC ACID. [Interacting]
     Active Substance: VALPROIC ACID
     Dosage: 2000 MG, UNK
     Dates: start: 20150912
  3. LEVETIRACETAM. [Concomitant]
     Active Substance: LEVETIRACETAM
     Indication: MYOCLONUS
     Dosage: UNK
  4. VALPROIC ACID. [Interacting]
     Active Substance: VALPROIC ACID
     Dosage: A VALPROATE BOLUS
     Dates: start: 20150913
  5. PROPOFOL. [Suspect]
     Active Substance: PROPOFOL
     Dosage: ADDED ON HD4
     Dates: start: 20150903
  6. VALPROIC ACID. [Interacting]
     Active Substance: VALPROIC ACID
     Indication: MYOCLONUS
     Dosage: 30 MG/KG, DAILY ADDED ON HD4
     Dates: start: 20150901
  7. VALPROIC ACID. [Interacting]
     Active Substance: VALPROIC ACID
     Dosage: 60 MG/KG, DAILY ON HD13, MAINTENANCE DOSE
     Dates: start: 20150913
  8. VALPROIC ACID. [Interacting]
     Active Substance: VALPROIC ACID
     Dosage: 80 MG/KG, DAILY ON HD14, MAINTENANCE DOSE
     Dates: start: 20150914
  9. MIDAZOLAM [Concomitant]
     Active Substance: MIDAZOLAM HYDROCHLORIDE
     Indication: MYOCLONUS
     Dosage: UNK
  10. VALPROIC ACID. [Interacting]
     Active Substance: VALPROIC ACID
     Dosage: 40 MG/KG, DAILY, MAINTENANCE DOSE
     Dates: start: 20150912

REACTIONS (5)
  - Drug prescribing error [Unknown]
  - Drug interaction [Unknown]
  - Hyperammonaemia [Unknown]
  - Drug level changed [Unknown]
  - Hepatic function abnormal [Unknown]
